FAERS Safety Report 8976243 (Version 2)
Quarter: 2013Q1

REPORT INFORMATION
  Report Type: Spontaneous
  Country: AU (occurrence: AU)
  Receive Date: 20121220
  Receipt Date: 20130212
  Transmission Date: 20140127
  Serious: Yes (Other)
  Sender: FDA-Public Use
  Company Number: PHHY2009AU46223

PATIENT
  Sex: Male

DRUGS (10)
  1. GLIVEC [Suspect]
     Indication: CHRONIC MYELOID LEUKAEMIA
     Dosage: 400 MG
     Route: 048
     Dates: start: 20020101
  2. ZYLOPRIM [Concomitant]
  3. HYDROCHLOROTHIAZIDE [Concomitant]
  4. DITHIAZIDE [Concomitant]
  5. KALURIL [Concomitant]
  6. LOSEC [Concomitant]
  7. MS CONTIN [Concomitant]
  8. CODEINE PHOSPHATE [Concomitant]
  9. TRYPTANOL [Concomitant]
  10. MORPHINE [Concomitant]
     Indication: BACK PAIN
     Dosage: UNK UKN, UNK

REACTIONS (7)
  - Speech disorder [Not Recovered/Not Resolved]
  - Swollen tongue [Not Recovered/Not Resolved]
  - Dyspnoea [Not Recovered/Not Resolved]
  - Nausea [Not Recovered/Not Resolved]
  - Vomiting [Not Recovered/Not Resolved]
  - Fatigue [Not Recovered/Not Resolved]
  - Constipation [Not Recovered/Not Resolved]
